FAERS Safety Report 13559738 (Version 4)
Quarter: 2017Q4

REPORT INFORMATION
  Report Type: Spontaneous
  Country: JP (occurrence: JP)
  Receive Date: 20170518
  Receipt Date: 20171110
  Transmission Date: 20180320
  Serious: Yes (Disabling)
  Sender: FDA-Public Use
  Company Number: JP-TAKEDA-2017MPI004339

PATIENT
  Age: 28 Year
  Sex: Male
  Weight: 62 kg

DRUGS (5)
  1. RITUXIMAB. [Concomitant]
     Active Substance: RITUXIMAB
     Indication: MANTLE CELL LYMPHOMA
     Dosage: 650 MG, UNK
     Route: 042
     Dates: start: 20170105, end: 20170225
  2. CYCLOPHOSPHAMIDE. [Concomitant]
     Active Substance: CYCLOPHOSPHAMIDE
     Indication: MANTLE CELL LYMPHOMA
     Dosage: 1300 MG, UNK
     Route: 042
     Dates: start: 20170105, end: 20170225
  3. PREDNISOLONE. [Concomitant]
     Active Substance: PREDNISOLONE
     Indication: MANTLE CELL LYMPHOMA
     Dosage: 200 MG, BID
     Route: 048
     Dates: start: 20170105, end: 20170225
  4. DOXORUBICIN HYDROCHLORIDE. [Concomitant]
     Active Substance: DOXORUBICIN HYDROCHLORIDE
     Indication: MANTLE CELL LYMPHOMA
     Dosage: 87 MG, UNK
     Route: 042
     Dates: start: 20170105, end: 20170225
  5. VELCADE [Suspect]
     Active Substance: BORTEZOMIB
     Indication: MANTLE CELL LYMPHOMA
     Dosage: 2.2 MG, UNK
     Route: 058
     Dates: start: 20170105, end: 20170225

REACTIONS (1)
  - Parkinson^s disease [Recovering/Resolving]

NARRATIVE: CASE EVENT DATE: 201701
